FAERS Safety Report 7086452-X (Version None)
Quarter: 2010Q4

REPORT INFORMATION
  Report Type: 
  Country: None (occurrence: None)
  Receive Date: 20101105
  Receipt Date: 20101028
  Transmission Date: 20110411
  Serious: Yes (Hospitalization)
  Sender: FDA-Public Use
  Company Number: FR-EISAI INC.-E3810-04206-SPO-FR

PATIENT
  Sex: Male

DRUGS (8)
  1. PARIET (RABEPRAZOLE) [Suspect]
     Dosage: UNKNOWN
     Route: 048
  2. RISPERDAL [Suspect]
     Route: 048
     Dates: end: 20100914
  3. TRIMEPRAZINE TAB [Suspect]
     Dates: end: 20100914
  4. RIVOTRIL [Suspect]
     Dates: end: 20100914
  5. MEPRONIZINE [Suspect]
     Dates: end: 20100914
  6. ACETYLSALICYLATE LYSINE [Concomitant]
  7. CLOPIDOGREL [Concomitant]
  8. PROPRANOLOL [Concomitant]

REACTIONS (2)
  - DEPRESSED LEVEL OF CONSCIOUSNESS [None]
  - MUSCULAR WEAKNESS [None]
